FAERS Safety Report 5487340-2 (Version None)
Quarter: 2007Q4

REPORT INFORMATION
  Report Type: 
  Country: None (occurrence: None)
  Receive Date: 20071016
  Receipt Date: 20071004
  Transmission Date: 20080405
  Serious: Yes (Hospitalization, Other)
  Sender: FDA-Public Use
  Company Number: US-PFIZER INC-2006109485

PATIENT
  Sex: Male
  Weight: 83 kg

DRUGS (3)
  1. BEXTRA [Suspect]
     Indication: PAIN
  2. CELEBREX [Suspect]
     Indication: PAIN
     Dates: start: 20040910
  3. VIOXX [Suspect]
     Indication: PAIN
     Route: 048
     Dates: start: 20021001, end: 20040930

REACTIONS (3)
  - CEREBROVASCULAR ACCIDENT [None]
  - MYOCARDIAL INFARCTION [None]
  - VERTIGO [None]
